FAERS Safety Report 19724938 (Version 1)
Quarter: 2021Q3

REPORT INFORMATION
  Report Type: Spontaneous
  Country: US (occurrence: US)
  Receive Date: 20210819
  Receipt Date: 20210819
  Transmission Date: 20211014
  Serious: No
  Sender: FDA-Public Use
  Company Number: None

PATIENT
  Age: 58 Year
  Sex: Male

DRUGS (1)
  1. ENBREL [Suspect]
     Active Substance: ETANERCEPT
     Indication: ILLNESS
     Route: 058
     Dates: start: 20210729

REACTIONS (5)
  - Device malfunction [None]
  - Injury associated with device [None]
  - Peripheral swelling [None]
  - Product dose omission issue [None]
  - Device leakage [None]

NARRATIVE: CASE EVENT DATE: 20210818
